FAERS Safety Report 10077553 (Version 1)
Quarter: 2014Q2

REPORT INFORMATION
  Report Type: Spontaneous
  Country: US (occurrence: US)
  Receive Date: 20140414
  Receipt Date: 20140414
  Transmission Date: 20141212
  Serious: No
  Sender: FDA-Public Use
  Company Number: US-BANPHARM-20131810

PATIENT
  Age: 58 Year
  Sex: Female
  Weight: 52.16 kg

DRUGS (6)
  1. ALEVE LIQUID GELS 220 MG [Suspect]
     Indication: HEADACHE
     Dosage: 1 DF, PRN,
     Route: 048
     Dates: start: 20131011, end: 20131011
  2. ATENOLOL [Concomitant]
  3. VITAMIN D [Concomitant]
  4. LIQUID B VITAMINS [Concomitant]
  5. DIGLYCERIDE [Concomitant]
  6. FEVERFEW [Concomitant]

REACTIONS (2)
  - Thermal burn [Recovered/Resolved]
  - Wrong technique in drug usage process [Unknown]
